FAERS Safety Report 4401374-8 (Version None)
Quarter: 2004Q3

REPORT INFORMATION
  Report Type: 
  Country: None (occurrence: None)
  Receive Date: 20040907
  Receipt Date: 20040331
  Transmission Date: 20050211
  Serious: Yes (Hospitalization)
  Sender: FDA-Public Use
  Company Number: US-BRISTOL-MYERS SQUIBB COMPANY-12547709

PATIENT
  Age: 42 Year
  Sex: Male
  Weight: 109 kg

DRUGS (2)
  1. COUMADIN [Suspect]
     Indication: THROMBOSIS PROPHYLAXIS
     Dosage: 2/17/04: 7.5MG QD X 7DAYS, THEN TO 10MG QD X 4 DAYS + 7.5MG QD X 3 DAYS.
     Route: 048
     Dates: start: 20030701
  2. PREVACID [Concomitant]
     Dosage: 1 TABLET ONCE A DAY
     Dates: start: 20040201

REACTIONS (4)
  - DIZZINESS [None]
  - INTERNATIONAL NORMALISED RATIO ABNORMAL [None]
  - SINUS PAIN [None]
  - THROMBOSIS [None]
